FAERS Safety Report 7231824-3 (Version None)
Quarter: 2011Q1

REPORT INFORMATION
  Report Type: 
  Country: None (occurrence: None)
  Receive Date: 20110118
  Receipt Date: 20110111
  Transmission Date: 20110831
  Serious: Yes (Disabling)
  Sender: FDA-Public Use
  Company Number: US-TEVA-262924USA

PATIENT
  Age: 70 Year
  Sex: Female

DRUGS (7)
  1. ETANERCEPT [Suspect]
     Route: 058
     Dates: start: 20090414, end: 20091101
  2. ETANERCEPT [Suspect]
     Route: 058
     Dates: start: 20091201
  3. ETANERCEPT [Suspect]
     Indication: RHEUMATOID ARTHRITIS
     Route: 058
     Dates: start: 20090701
  4. PREDNISOLONE [Suspect]
     Route: 048
     Dates: start: 20090101
  5. VITACAL [Concomitant]
  6. METHOTREXATE SOLUTION FOR INJECTION, 25 MG/ML [Suspect]
     Route: 048
     Dates: start: 20090101
  7. FOLIC ACID [Concomitant]

REACTIONS (5)
  - RETINAL DETACHMENT [None]
  - DRUG INEFFECTIVE [None]
  - BLINDNESS [None]
  - EYE HAEMORRHAGE [None]
  - EYE INFECTION [None]
